FAERS Safety Report 7780088-0 (Version None)
Quarter: 2011Q3

REPORT INFORMATION
  Report Type: 
  Country: None (occurrence: None)
  Receive Date: 20110922
  Receipt Date: 20110913
  Transmission Date: 20111222
  Serious: Yes (Hospitalization)
  Sender: FDA-Public Use
  Company Number: 2011MA013689

PATIENT
  Age: 81 Year
  Sex: Male

DRUGS (13)
  1. DALTEPARIN SODIUM [Concomitant]
  2. MOVIPREP [Concomitant]
  3. PIPERACILLIN AND TAZOBACTAM [Concomitant]
  4. CALCIUM AND COLECALCIFEROL [Concomitant]
  5. MIDODRINE HYDROCHLORIDE [Concomitant]
  6. ACETAMINOPHEN [Concomitant]
  7. STALEVO 100 [Concomitant]
  8. ROPINIROLE [Concomitant]
  9. RASAGILINE [Suspect]
     Indication: PARKINSON'S DISEASE
     Dosage: 1 MG;QD;PO
     Route: 048
     Dates: start: 20091001
  10. ALENDRONIC ACID [Concomitant]
  11. CITALOPRAM HYDROBROMIDE [Suspect]
     Dosage: 10 MG;QD;PO
     Route: 048
  12. FINASTERIDE [Concomitant]
  13. OMEPRAZOLE [Concomitant]

REACTIONS (7)
  - HYPERPYREXIA [None]
  - SEROTONIN SYNDROME [None]
  - MUSCLE RIGIDITY [None]
  - NEUROLEPTIC MALIGNANT SYNDROME [None]
  - HYPERHIDROSIS [None]
  - HYPERTONIA [None]
  - BLOOD CREATINE PHOSPHOKINASE INCREASED [None]
